FAERS Safety Report 22146388 (Version 1)
Quarter: 2023Q1

REPORT INFORMATION
  Report Type: Spontaneous
  Country: US (occurrence: US)
  Receive Date: 20230328
  Receipt Date: 20230328
  Transmission Date: 20230418
  Serious: No
  Sender: FDA-Public Use
  Company Number: US-AMNEAL PHARMACEUTICALS-2022-AMRX-01118

PATIENT
  Age: 46 Year
  Sex: Female
  Weight: 65.77 kg

DRUGS (2)
  1. ESTRADIOL TRANSDERMAL SYSTEM [Suspect]
     Active Substance: ESTRADIOL
     Indication: Hormone level abnormal
     Dosage: 0.05 MILLIGRAM, 2 /WEEK
     Route: 062
     Dates: start: 202104
  2. VITAMIN B12 [Concomitant]
     Active Substance: CYANOCOBALAMIN
     Indication: Product used for unknown indication
     Dosage: 5000 MICROGRAM, 1 /DAY
     Route: 048
     Dates: start: 202110

REACTIONS (2)
  - Drug ineffective [Unknown]
  - Hot flush [Recovered/Resolved]

NARRATIVE: CASE EVENT DATE: 20220411
